FAERS Safety Report 9448038 (Version 2)
Quarter: 2013Q4

REPORT INFORMATION
  Report Type: Spontaneous
  Country: DE (occurrence: DE)
  Receive Date: 20130808
  Receipt Date: 20131106
  Transmission Date: 20140711
  Serious: Yes (Hospitalization)
  Sender: FDA-Public Use
  Company Number: DE-BAYER-2013-094505

PATIENT
  Age: 73 Year
  Sex: Male

DRUGS (1)
  1. SORAFENIB (RAF KINASE INHIBITOR) [Suspect]
     Indication: HEPATOCELLULAR CARCINOMA
     Dosage: 2 DF, BID (^2-0-2^)
     Route: 048
     Dates: start: 201102

REACTIONS (1)
  - Pulmonary fibrosis [Not Recovered/Not Resolved]
